FAERS Safety Report 25490001 (Version 1)
Quarter: 2025Q2

REPORT INFORMATION
  Report Type: Spontaneous
  Country: US (occurrence: US)
  Receive Date: 20250628
  Receipt Date: 20250628
  Transmission Date: 20250717
  Serious: No
  Sender: QUAGEN PHARMACEUTICALS
  Company Number: US-QUAGEN-2025QUASPO00411

PATIENT
  Sex: Female

DRUGS (2)
  1. PROPYLTHIOURACIL [Suspect]
     Active Substance: PROPYLTHIOURACIL
     Indication: Hyperthyroidism
     Route: 065
  2. ALPRAZOLAM [Concomitant]
     Active Substance: ALPRAZOLAM
     Indication: Anxiety
     Route: 065

REACTIONS (4)
  - Oropharyngeal discomfort [Unknown]
  - Dysgeusia [Unknown]
  - Product taste abnormal [Unknown]
  - Exposure during pregnancy [Unknown]
